FAERS Safety Report 10344288 (Version 1)
Quarter: 2014Q3

REPORT INFORMATION
  Report Type: Spontaneous
  Country: US (occurrence: US)
  Receive Date: 20140728
  Receipt Date: 20140728
  Transmission Date: 20150326
  Serious: No
  Sender: FDA-Public Use
  Company Number: US-009507513-1407USA009108

PATIENT

DRUGS (1)
  1. TICE BCG [Suspect]
     Active Substance: BACILLUS CALMETTE-GUERIN SUBSTRAIN TICE LIVE ANTIGEN
     Indication: BLADDER CANCER
     Dosage: 50 ML, UNK
     Route: 066
     Dates: start: 20140716, end: 20140716

REACTIONS (3)
  - Incorrect product storage [Unknown]
  - Product quality issue [Unknown]
  - No adverse event [Unknown]
